FAERS Safety Report 14187685 (Version 1)
Quarter: 2017Q4

REPORT INFORMATION
  Report Type: Spontaneous
  Country: US (occurrence: US)
  Receive Date: 20171114
  Receipt Date: 20171114
  Transmission Date: 20180321
  Serious: Yes (Other)
  Sender: FDA-Public Use
  Company Number: US-ASTRAZENECA-2017SF12946

PATIENT
  Age: 65 Year
  Sex: Female

DRUGS (9)
  1. FLEXERIL [Concomitant]
     Active Substance: CYCLOBENZAPRINE HYDROCHLORIDE
  2. ADVAIR HFA [Concomitant]
     Active Substance: FLUTICASONE PROPIONATE\SALMETEROL XINAFOATE
     Dates: start: 201710
  3. SINGULAIR [Concomitant]
     Active Substance: MONTELUKAST SODIUM
  4. CYMBALTA [Concomitant]
     Active Substance: DULOXETINE HYDROCHLORIDE
     Dates: start: 201710
  5. NEXIUM [Suspect]
     Active Substance: ESOMEPRAZOLE MAGNESIUM
     Route: 048
  6. ENBREL [Suspect]
     Active Substance: ETANERCEPT
     Indication: RHEUMATOID ARTHRITIS
     Route: 065
     Dates: start: 2012
  7. CLONOPIN [Concomitant]
     Active Substance: CLONAZEPAM
  8. ENBREL [Suspect]
     Active Substance: ETANERCEPT
     Indication: RHEUMATOID ARTHRITIS
     Dosage: 50.0MG UNKNOWN
     Route: 065
  9. ENBREL [Suspect]
     Active Substance: ETANERCEPT
     Indication: RHEUMATOID ARTHRITIS
     Dosage: 50.0MG UNKNOWN
     Route: 065
     Dates: start: 20140615

REACTIONS (15)
  - Breast cancer [Unknown]
  - Rheumatoid arthritis [Unknown]
  - Ulcer haemorrhage [Not Recovered/Not Resolved]
  - Stress [Unknown]
  - Peripheral swelling [Unknown]
  - Drug dose omission [Unknown]
  - Renal failure [Unknown]
  - Contusion [Unknown]
  - Musculoskeletal disorder [Unknown]
  - Fatigue [Unknown]
  - Pain in extremity [Unknown]
  - Pain [Unknown]
  - Foot deformity [Unknown]
  - Arthralgia [Unknown]
  - Hiatus hernia [Not Recovered/Not Resolved]

NARRATIVE: CASE EVENT DATE: 2014
